FAERS Safety Report 14566395 (Version 2)
Quarter: 2018Q1

REPORT INFORMATION
  Report Type: Report from Study
  Country: US (occurrence: US)
  Receive Date: 20180223
  Receipt Date: 20180301
  Transmission Date: 20180509
  Serious: Yes (Hospitalization)
  Sender: FDA-Public Use
  Company Number: US-GILEAD-2018-0321396

PATIENT
  Age: 77 Year
  Sex: Female

DRUGS (1)
  1. AMBRISENTAN [Suspect]
     Active Substance: AMBRISENTAN
     Indication: PRODUCT USED FOR UNKNOWN INDICATION
     Dosage: 5 MG, UNK
     Route: 065
     Dates: start: 20111020

REACTIONS (11)
  - Product use issue [Unknown]
  - Swelling [Not Recovered/Not Resolved]
  - Dyspnoea [Unknown]
  - Renal disorder [Unknown]
  - Back pain [Not Recovered/Not Resolved]
  - Movement disorder [Unknown]
  - Wheezing [Unknown]
  - Lethargy [Unknown]
  - Neuralgia [Not Recovered/Not Resolved]
  - Agitation [Not Recovered/Not Resolved]
  - Stress [Not Recovered/Not Resolved]

NARRATIVE: CASE EVENT DATE: 20180206
